FAERS Safety Report 8964533 (Version 1)
Quarter: 2012Q4

REPORT INFORMATION
  Report Type: 
  Country: FR (occurrence: FR)
  Receive Date: 20121214
  Receipt Date: 20121214
  Transmission Date: 20130627
  Serious: Yes (Other)
  Sender: FDA-Public Use
  Company Number: FR-ELI_LILLY_AND_COMPANY-FR201210005716

PATIENT
  Age: 83 Year
  Sex: Male

DRUGS (4)
  1. FORSTEO [Suspect]
     Indication: OSTEOPOROSIS
     Dosage: 20 ug, qd
     Route: 058
     Dates: start: 20121015, end: 20121018
  2. PRETERAX [Concomitant]
     Indication: HYPERTENSION
     Dosage: UNK
     Route: 048
     Dates: start: 2009
  3. PREVISCAN [Concomitant]
     Indication: ARTERIAL THROMBOSIS
     Dosage: UNK
     Route: 048
     Dates: start: 2009
  4. LAMALINE [Concomitant]
     Indication: PAIN
     Dosage: UNK
     Route: 048
     Dates: start: 2012

REACTIONS (3)
  - Tachycardia [Recovered/Resolved]
  - Hypertensive crisis [Recovered/Resolved]
  - Asthenia [Not Recovered/Not Resolved]
